FAERS Safety Report 7336155-9 (Version None)
Quarter: 2011Q1

REPORT INFORMATION
  Report Type: 
  Country: None (occurrence: None)
  Receive Date: 20110307
  Receipt Date: 20110224
  Transmission Date: 20110831
  Serious: Yes (Hospitalization)
  Sender: FDA-Public Use
  Company Number: GB-ASTRAZENECA-2011SE10490

PATIENT
  Age: 45 Year
  Sex: Female

DRUGS (4)
  1. METFORMIN [Concomitant]
     Indication: DIABETES MELLITUS
     Route: 048
  2. CITALOPRAM [Concomitant]
     Indication: DEPRESSION
     Route: 048
  3. ZOLADEX [Suspect]
     Route: 058
     Dates: end: 20100601
  4. LIVIAL [Concomitant]
     Indication: HORMONE REPLACEMENT THERAPY
     Route: 048
     Dates: end: 20100701

REACTIONS (3)
  - CUTANEOUS VASCULITIS [None]
  - ARTHRALGIA [None]
  - PROTEINURIA [None]
